FAERS Safety Report 6335863-6 (Version None)
Quarter: 2009Q3

REPORT INFORMATION
  Report Type: 
  Country: None (occurrence: None)
  Receive Date: 20090828
  Receipt Date: 20090817
  Transmission Date: 20100115
  Serious: Yes (Other)
  Sender: FDA-Public Use
  Company Number: 230019K09CHE

PATIENT
  Age: 35 Year
  Sex: Female

DRUGS (2)
  1. REBIF [Suspect]
     Dosage: 44 MCG; 22 MCG
     Dates: start: 20090101
  2. REBIF [Suspect]
     Dosage: 44 MCG; 22 MCG
     Dates: start: 20090101

REACTIONS (9)
  - BODY TEMPERATURE INCREASED [None]
  - CENTRAL NERVOUS SYSTEM LESION [None]
  - HEADACHE [None]
  - LIVER FUNCTION TEST ABNORMAL [None]
  - MALAISE [None]
  - PRODUCT FORMULATION ISSUE [None]
  - SINUSITIS [None]
  - THYROIDITIS [None]
  - VERTIGO [None]
